FAERS Safety Report 4839940-8 (Version None)
Quarter: 2005Q4

REPORT INFORMATION
  Report Type: 
  Country: None (occurrence: None)
  Receive Date: 20051129
  Receipt Date: 20050124
  Transmission Date: 20060501
  Serious: Yes (Disabling, Other)
  Sender: FDA-Public Use
  Company Number: US-GILEAD-2005-0007954

PATIENT
  Sex: Male
  Weight: 75.364 kg

DRUGS (10)
  1. VIREAD [Suspect]
     Indication: HIV INFECTION
     Route: 048
     Dates: start: 20020201, end: 20041223
  2. VIDEX EC [Suspect]
     Indication: HIV INFECTION
     Route: 048
     Dates: start: 20020801, end: 20041223
  3. KALETRA [Concomitant]
     Indication: HIV INFECTION
     Route: 048
     Dates: start: 20010401, end: 20041201
  4. EPIVIR [Concomitant]
     Indication: HIV INFECTION
     Route: 048
     Dates: start: 19900101, end: 20041201
  5. NASACORT AQ [Concomitant]
     Route: 045
     Dates: start: 19900101
  6. TERAZOSIN [Concomitant]
     Route: 048
     Dates: start: 19900101
  7. BACLOFEN [Concomitant]
     Route: 048
     Dates: start: 20030101
  8. FOLIC ACID [Concomitant]
     Route: 048
     Dates: start: 20041001
  9. COUMADIN [Concomitant]
     Dates: start: 20031101
  10. ANDROGEL [Concomitant]
     Route: 061
     Dates: start: 20041001

REACTIONS (3)
  - AIDS RELATED COMPLICATION [None]
  - HYPERLACTACIDAEMIA [None]
  - MYELOPATHY [None]
